FAERS Safety Report 19494522 (Version 2)
Quarter: 2021Q3

REPORT INFORMATION
  Report Type: Report from Study
  Country: PA (occurrence: PA)
  Receive Date: 20210705
  Receipt Date: 20210714
  Transmission Date: 20211014
  Serious: Yes (Other)
  Sender: FDA-Public Use
  Company Number: NVSC2021PA140040

PATIENT
  Age: 62 Year
  Sex: Female

DRUGS (6)
  1. OZONE [Concomitant]
     Active Substance: OZONE
     Indication: PRODUCT USED FOR UNKNOWN INDICATION
     Dosage: UNK
     Route: 042
  2. FULVESTRANT. [Suspect]
     Active Substance: FULVESTRANT
     Dosage: 2 DF
     Route: 065
     Dates: start: 202105
  3. FULVESTRANT. [Suspect]
     Active Substance: FULVESTRANT
     Indication: METASTASES TO SKIN
     Dosage: UNK
     Route: 065
  4. KISQALI [Suspect]
     Active Substance: RIBOCICLIB
     Indication: BREAST CANCER METASTATIC
     Dosage: 600 MG, QD
     Route: 048
     Dates: start: 20210513
  5. KISQALI [Suspect]
     Active Substance: RIBOCICLIB
     Indication: BREAST CANCER
  6. KISQALI [Suspect]
     Active Substance: RIBOCICLIB
     Indication: METASTASES TO SKIN
     Dosage: 3 DF, QD (TOGETHER IN THE MORNING, FOR 21 DAYS)
     Route: 065
     Dates: start: 202105

REACTIONS (9)
  - Depressed mood [Recovering/Resolving]
  - Cough [Unknown]
  - Decreased immune responsiveness [Unknown]
  - Discomfort [Unknown]
  - Nasopharyngitis [Unknown]
  - Insomnia [Unknown]
  - Dry skin [Unknown]
  - Metastases to skin [Unknown]
  - Constipation [Unknown]

NARRATIVE: CASE EVENT DATE: 202105
